FAERS Safety Report 22049913 (Version 1)
Quarter: 2023Q1

REPORT INFORMATION
  Report Type: Spontaneous
  Country: US (occurrence: US)
  Receive Date: 20230301
  Receipt Date: 20230301
  Transmission Date: 20230417
  Serious: No
  Sender: FDA-Public Use
  Company Number: US-SA-SAC20230227001063

PATIENT
  Sex: Female

DRUGS (2)
  1. DUPIXENT [Suspect]
     Active Substance: DUPILUMAB
     Indication: Product used for unknown indication
     Dosage: 300 MG, QOW
     Route: 058
  2. HUMIRA [Concomitant]
     Active Substance: ADALIMUMAB
     Dosage: UNK

REACTIONS (9)
  - Skin atrophy [Unknown]
  - Skin haemorrhage [Unknown]
  - Condition aggravated [Unknown]
  - Pruritus [Unknown]
  - Sinusitis [Unknown]
  - Erythema [Unknown]
  - Rash [Unknown]
  - Therapeutic response unexpected [Unknown]
  - Drug ineffective [Unknown]
